FAERS Safety Report 9437622 (Version 4)
Quarter: 2013Q3

REPORT INFORMATION
  Report Type: Spontaneous
  Country: US (occurrence: US)
  Receive Date: 20130802
  Receipt Date: 20130826
  Transmission Date: 20140515
  Serious: Yes (Hospitalization, Other)
  Sender: FDA-Public Use
  Company Number: US-PFIZER INC-2013221333

PATIENT
  Age: 68 Year
  Sex: Female
  Weight: 78 kg

DRUGS (7)
  1. ZITHROMAX [Suspect]
     Indication: CELLULITIS
     Dosage: UNK
     Dates: start: 20130530, end: 20130603
  2. ZYVOX [Interacting]
     Indication: CELLULITIS
     Dosage: 500 MG, 1X/DAY
     Route: 048
     Dates: start: 201306, end: 201306
  3. CIPROFLOXACIN [Suspect]
     Indication: CELLULITIS
     Dosage: UNK, SINGLE
     Dates: start: 201306, end: 201306
  4. DOXYCYCLINE MONOHYDRATE [Suspect]
     Indication: CELLULITIS
     Dosage: UNK
     Dates: end: 201306
  5. SERTRALINE HCL [Interacting]
     Indication: DEPRESSION
     Dosage: 200 MG, 1X/DAY
     Dates: start: 2000
  6. IMIPRAMINE [Interacting]
     Indication: DEPRESSION
     Dosage: 100 MG, 1X/DAY
     Dates: start: 2000
  7. DESIPRAMINE [Suspect]
     Dosage: UNK

REACTIONS (15)
  - Cellulitis [Unknown]
  - Atrioventricular block [Unknown]
  - Chest pain [Not Recovered/Not Resolved]
  - Anxiety [Not Recovered/Not Resolved]
  - Serotonin syndrome [Unknown]
  - Hypertension [Not Recovered/Not Resolved]
  - Personality disorder [Not Recovered/Not Resolved]
  - Mental impairment [Not Recovered/Not Resolved]
  - Oedema [Unknown]
  - Memory impairment [Not Recovered/Not Resolved]
  - Insomnia [Not Recovered/Not Resolved]
  - Confusional state [Not Recovered/Not Resolved]
  - Skin hypertrophy [Unknown]
  - Drug interaction [Unknown]
  - Drug ineffective [Unknown]
